FAERS Safety Report 20519268 (Version 1)
Quarter: 2022Q1

REPORT INFORMATION
  Report Type: Spontaneous
  Country: US (occurrence: US)
  Receive Date: 20220225
  Receipt Date: 20220225
  Transmission Date: 20220424
  Serious: No
  Sender: FDA-Public Use
  Company Number: US-NOVOPROD-847870

PATIENT
  Sex: Female

DRUGS (1)
  1. VICTOZA [Suspect]
     Active Substance: LIRAGLUTIDE
     Indication: Weight decreased
     Dosage: 1.8 MG, QD
     Route: 058
     Dates: start: 202101, end: 2021

REACTIONS (2)
  - Weight loss poor [Unknown]
  - Off label use [Recovered/Resolved]
